FAERS Safety Report 23939257 (Version 3)
Quarter: 2025Q1

REPORT INFORMATION
  Report Type: Report from Study
  Country: US (occurrence: US)
  Receive Date: 20240605
  Receipt Date: 20250131
  Transmission Date: 20250408
  Serious: No
  Sender: SANDOZ
  Company Number: US-SANDOZ-SDZ2024US054614

PATIENT
  Age: 4 Year

DRUGS (4)
  1. OMNITROPE [Suspect]
     Active Substance: SOMATROPIN
     Indication: Product used for unknown indication
     Dosage: 5 MG, QD
     Route: 030
     Dates: start: 20240410
  2. OMNITROPE [Suspect]
     Active Substance: SOMATROPIN
     Indication: Product used for unknown indication
     Dosage: 5 MG, QD
     Route: 030
     Dates: start: 20240410
  3. OMNITROPE [Suspect]
     Active Substance: SOMATROPIN
     Route: 058
  4. OMNITROPE [Suspect]
     Active Substance: SOMATROPIN
     Route: 058

REACTIONS (4)
  - Incorrect dose administered [Unknown]
  - Device breakage [Unknown]
  - Device leakage [Unknown]
  - Drug ineffective [Unknown]

NARRATIVE: CASE EVENT DATE: 20240603
